FAERS Safety Report 8987139 (Version 1)
Quarter: 2012Q4

REPORT INFORMATION
  Report Type: 
  Country: BE (occurrence: BE)
  Receive Date: 20121227
  Receipt Date: 20121227
  Transmission Date: 20130627
  Serious: Yes (Other)
  Sender: FDA-Public Use
  Company Number: BE-JNJFOC-20121206147

PATIENT
  Age: 78 Year
  Sex: Male

DRUGS (2)
  1. ZYTIGA [Suspect]
     Indication: PRODUCT USED FOR UNKNOWN INDICATION
     Route: 048
     Dates: start: 20121002
  2. PREDNISONE [Concomitant]
     Dosage: 5 mg x 2
     Route: 065

REACTIONS (1)
  - Abdominal pain lower [Unknown]
